FAERS Safety Report 5832526-8 (Version None)
Quarter: 2008Q3

REPORT INFORMATION
  Report Type: 
  Country: None (occurrence: None)
  Receive Date: 20080730
  Receipt Date: 20080715
  Transmission Date: 20090109
  Serious: Yes (Other)
  Sender: FDA-Public Use
  Company Number: AMAN20080007

PATIENT
  Age: 59 Year
  Sex: Female

DRUGS (4)
  1. AMANTADINE HCL [Suspect]
     Indication: PARKINSON'S DISEASE
     Dosage: 50 MG, 3 TIMES DAILY, PER ORAL
     Route: 048
  2. SELEGILINE HCL [Suspect]
     Indication: PARKINSON'S DISEASE
     Dosage: 5 MG, ONCE DAILY, PER ORAL
     Route: 048
  3. MADOPAR (LEVODOPA/BENSERAZIDE) 100 MG/25 MG [Suspect]
     Indication: PARKINSON'S DISEASE
     Dosage: 100 MG/25 MG, 3 TIMES DAILY, PER ORAL
     Route: 048
  4. MADOPAR DISPERSIBLE (LEVODOPA/BENSERAZIDE) 50 MG/12.5 MG [Suspect]
     Indication: PARKINSON'S DISEASE
     Dosage: 50 MG/12.5 MG, 3 TIMES DAILY, PER ORAL
     Route: 048

REACTIONS (6)
  - DYSKINESIA [None]
  - DYSSTASIA [None]
  - FREEZING PHENOMENON [None]
  - GAIT DISTURBANCE [None]
  - MUSCLE RIGIDITY [None]
  - TREMOR [None]
